FAERS Safety Report 19239613 (Version 2)
Quarter: 2021Q2

REPORT INFORMATION
  Report Type: Other
  Country: US (occurrence: US)
  Receive Date: 20210510
  Receipt Date: 20210528
  Transmission Date: 20210717
  Serious: Yes (Hospitalization)
  Sender: FDA-Public Use
  Company Number: US-ROCHE-2824889

PATIENT
  Sex: Female
  Weight: 47.67 kg

DRUGS (1)
  1. OCREVUS [Suspect]
     Active Substance: OCRELIZUMAB
     Indication: SECONDARY PROGRESSIVE MULTIPLE SCLEROSIS
     Dosage: 300 MG ON DAY 1 AND 15, THEN 600 MG ONCE IN 6 MONTHS?DATE OF TREATMENT: /OCT/2020 AND /APR/2021
     Route: 065
     Dates: start: 202004

REACTIONS (5)
  - Chest pain [Recovering/Resolving]
  - Hypersomnia [Recovering/Resolving]
  - Dyspnoea [Recovering/Resolving]
  - Infection [Unknown]
  - Dysphagia [Unknown]
